FAERS Safety Report 6250793-6 (Version None)
Quarter: 2009Q2

REPORT INFORMATION
  Report Type: 
  Country: None (occurrence: None)
  Receive Date: 20090626
  Receipt Date: 20090605
  Transmission Date: 20091009
  Serious: Yes (Hospitalization)
  Sender: FDA-Public Use
  Company Number: ADR2432009 (BFARM REF NO.: DE-BFARM-09069010)

PATIENT
  Age: 72 Year
  Sex: Female

DRUGS (10)
  1. AMLODIPINE [Suspect]
     Indication: HYPERTENSION
     Dosage: 5 MG QD ORAL
     Route: 048
     Dates: start: 20080501
  2. FENTANYL TRANSDERMAL SYSTEM [Concomitant]
  3. ALENDRONSAEURE TABLETS [Concomitant]
  4. CALCIMAGON-D3? TABLETS [Concomitant]
  5. CO-DIOVAN? [Concomitant]
  6. GODAMED? [Concomitant]
  7. MICTONORM? [Concomitant]
  8. PANTOZOL? [Concomitant]
  9. PRESOMEN? [Concomitant]
  10. VIANI? [Concomitant]

REACTIONS (3)
  - CONSTIPATION [None]
  - FAECALOMA [None]
  - LIPASE INCREASED [None]
